FAERS Safety Report 16754234 (Version 1)
Quarter: 2019Q3

REPORT INFORMATION
  Report Type: Spontaneous
  Country: RU (occurrence: RU)
  Receive Date: 20190829
  Receipt Date: 20190829
  Transmission Date: 20191005
  Serious: Yes (Hospitalization, Other)
  Sender: FDA-Public Use
  Company Number: RU-TEVA-2019-RU-1092551

PATIENT
  Age: 40 Year
  Sex: Male

DRUGS (21)
  1. ACITRETIN. [Suspect]
     Active Substance: ACITRETIN
     Indication: PSORIATIC ARTHROPATHY
     Dosage: 75 MILLIGRAM DAILY; LATER RESTARTED AND AGAIN WITHDRAWN
     Route: 065
     Dates: start: 2017
  2. ACITRETIN. [Suspect]
     Active Substance: ACITRETIN
     Dosage: 50 MILLIGRAM DAILY; WITH USTEKINUMAB; ?LATER RESTARTED AND AGAIN WITHDRAWN
     Route: 065
  3. ACITRETIN. [Suspect]
     Active Substance: ACITRETIN
     Dosage: 50 MILLIGRAM DAILY; LATER RESTARTED AND AGAIN WITHDRAWN
     Route: 065
     Dates: start: 2017
  4. AMMIFURIN SOLUTION [Concomitant]
  5. ACITRETIN. [Suspect]
     Active Substance: ACITRETIN
     Route: 065
  6. USTEKINUMAB [Suspect]
     Active Substance: USTEKINUMAB
     Indication: PSORIASIS
     Dosage: FORMULATION: INFUSION;?LATER RESTARTED AND AGAIN WITHDRAWN;
     Dates: start: 201505
  7. METHOTREXATE. [Suspect]
     Active Substance: METHOTREXATE
     Indication: PSORIASIS
     Dosage: 15-25 MG FOR MORE THAN 5 YEARS; LATER RESTARTED AT 15MG, AND AGAIN WITHDRAWN
     Route: 065
  8. CYCLOSPORIN A [Suspect]
     Active Substance: CYCLOSPORINE
     Indication: IMMUNOSUPPRESSANT DRUG THERAPY
  9. BETAMETHASONE. [Suspect]
     Active Substance: BETAMETHASONE
     Indication: PSORIASIS
     Route: 065
  10. USTEKINUMAB [Suspect]
     Active Substance: USTEKINUMAB
     Indication: PSORIATIC ARTHROPATHY
     Dosage: FORMULATION: INFUSION; INTERVAL BETWEEN INFUSIONS: 8 WEEKS;?LATER RESTARTED AND AGAIN WITHDRAWN
     Route: 065
  11. INFLIXIMAB [Suspect]
     Active Substance: INFLIXIMAB
     Indication: PSORIATIC ARTHROPATHY
  12. CYCLOSPORIN A [Suspect]
     Active Substance: CYCLOSPORINE
     Indication: PSORIASIS
     Dosage: LATER RESTARTED AGAIN AT 5MG/KG AND AGAIN WITHDRAWN
     Route: 065
  13. CYCLOSPORIN A [Suspect]
     Active Substance: CYCLOSPORINE
     Indication: PSORIATIC ARTHROPATHY
  14. INFLIXIMAB [Suspect]
     Active Substance: INFLIXIMAB
     Indication: PSORIASIS
     Dosage: FORMULATION: INFUSION
     Route: 065
     Dates: end: 2014
  15. METHOTREXATE. [Suspect]
     Active Substance: METHOTREXATE
     Indication: CHEMOTHERAPY
  16. METHOTREXATE. [Suspect]
     Active Substance: METHOTREXATE
     Indication: PSORIATIC ARTHROPATHY
  17. UNSPECIFIED TOPICAL GLUCOCORTICOIDS [Concomitant]
     Indication: PSORIASIS
  18. BETAMETHASONE. [Suspect]
     Active Substance: BETAMETHASONE
     Indication: PSORIATIC ARTHROPATHY
  19. DOXYCYCLINE. [Suspect]
     Active Substance: DOXYCYCLINE
     Indication: RESPIRATORY TRACT INFECTION VIRAL
     Route: 065
  20. HEPATIC PROTECTORS [Concomitant]
  21. DEXAMETHASONE. [Concomitant]
     Active Substance: DEXAMETHASONE

REACTIONS (4)
  - Drug ineffective [Unknown]
  - Infusion related reaction [Unknown]
  - Psoriasis [Unknown]
  - Hepatitis toxic [Unknown]

NARRATIVE: CASE EVENT DATE: 2014
